FAERS Safety Report 7359864-4 (Version None)
Quarter: 2011Q1

REPORT INFORMATION
  Report Type: 
  Country: None (occurrence: None)
  Receive Date: 20110317
  Receipt Date: 20110309
  Transmission Date: 20110831
  Serious: Yes (Hospitalization)
  Sender: FDA-Public Use
  Company Number: US-US-EMD SERONO, INC.-236277K09USA

PATIENT
  Sex: Male

DRUGS (5)
  1. CHOLESTEROL MEDICATION [Concomitant]
  2. UNSPECIFIED MEDICATIONS [Concomitant]
  3. ANTIVERT [Concomitant]
     Indication: VERTIGO
  4. REBIF [Suspect]
     Indication: MULTIPLE SCLEROSIS
     Route: 058
     Dates: start: 20090306, end: 20090401
  5. REBIF [Suspect]
     Route: 058
     Dates: start: 20090101

REACTIONS (4)
  - ABASIA [None]
  - MENTAL IMPAIRMENT [None]
  - ACTIVITIES OF DAILY LIVING IMPAIRED [None]
  - GRAND MAL CONVULSION [None]
